FAERS Safety Report 10149950 (Version 1)
Quarter: 2014Q2

REPORT INFORMATION
  Report Type: Spontaneous
  Country: FR (occurrence: FR)
  Receive Date: 20140502
  Receipt Date: 20140502
  Transmission Date: 20141212
  Serious: Yes (Other)
  Sender: FDA-Public Use
  Company Number: FR-UCBSA-119275

PATIENT
  Age: 70 Year
  Sex: Female

DRUGS (11)
  1. CIMZIA [Suspect]
     Indication: RHEUMATOID ARTHRITIS
     Route: 058
     Dates: start: 20130318, end: 20140211
  2. IMETH [Concomitant]
     Dates: start: 1998, end: 2004
  3. IMETH [Concomitant]
     Dosage: 10 MG, 1 INJECTION PER WEEK
     Dates: start: 201303, end: 201312
  4. IMETH [Concomitant]
     Dosage: 10 MG, 1 INJECTION PER WEEK
     Dates: start: 20140211
  5. SPECIAFOLDINE [Concomitant]
     Dates: start: 1998, end: 2004
  6. SPECIAFOLDINE [Concomitant]
     Dosage: 5 MG, 1 TAB PER WEEK
     Dates: start: 201303, end: 201312
  7. SPECIAFOLDINE [Concomitant]
     Dosage: 5 MG, 1 TAB PER WEEK
     Dates: start: 20140211
  8. LYRICA [Concomitant]
     Dosage: 50 MG 3/DAY
     Dates: start: 2012
  9. ZELITREX [Concomitant]
     Dosage: 500 MG 2/DAY
     Dates: start: 2012
  10. INIPOMP [Concomitant]
     Dates: start: 2012
  11. DAFALGAN [Concomitant]

REACTIONS (1)
  - Hypersensitivity vasculitis [Recovered/Resolved]
